FAERS Safety Report 14314318 (Version 1)
Quarter: 2017Q4

REPORT INFORMATION
  Report Type: Spontaneous
  Country: US (occurrence: US)
  Receive Date: 20171221
  Receipt Date: 20171221
  Transmission Date: 20180321
  Serious: Yes (Other)
  Sender: FDA-Public Use
  Company Number: US-DSJP-DSU-2017-144507

PATIENT

DRUGS (2)
  1. BENICAR [Suspect]
     Active Substance: OLMESARTAN MEDOXOMIL
     Indication: HYPERTENSION
     Dosage: 20 MG, QD
     Route: 048
     Dates: start: 20031002, end: 20050801
  2. BENICAR [Suspect]
     Active Substance: OLMESARTAN MEDOXOMIL
     Dosage: 40 MG, QD
     Route: 048
     Dates: start: 20050801, end: 20140305

REACTIONS (9)
  - Duodenitis [Unknown]
  - Large intestine polyp [Unknown]
  - Chronic gastritis [Recovering/Resolving]
  - Constipation [Unknown]
  - Renal failure [Recovered/Resolved]
  - Peptic ulcer [Unknown]
  - Gastrooesophageal reflux disease [Unknown]
  - Weight decreased [Recovered/Resolved]
  - Hiatus hernia [Unknown]

NARRATIVE: CASE EVENT DATE: 20050801
